FAERS Safety Report 15114864 (Version 1)
Quarter: 2018Q3

REPORT INFORMATION
  Report Type: Spontaneous
  Country: CN (occurrence: CN)
  Receive Date: 20180706
  Receipt Date: 20180706
  Transmission Date: 20181010
  Serious: Yes (Other)
  Sender: FDA-Public Use
  Company Number: CN-ASTRAZENECA-2018SE86578

PATIENT
  Age: 16631 Day
  Sex: Female
  Weight: 67 kg

DRUGS (1)
  1. TICAGRELOR. [Suspect]
     Active Substance: TICAGRELOR
     Indication: PLATELET DISORDER
     Route: 048
     Dates: start: 20180519, end: 20180521

REACTIONS (2)
  - Chest discomfort [Recovering/Resolving]
  - Dyspnoea [Recovering/Resolving]

NARRATIVE: CASE EVENT DATE: 20180521
